FAERS Safety Report 24045065 (Version 1)
Quarter: 2024Q3

REPORT INFORMATION
  Report Type: Spontaneous
  Country: ES (occurrence: A1)
  Receive Date: 20240703
  Receipt Date: 20240703
  Transmission Date: 20241016
  Serious: Yes (Death, Life-Threatening, Other)
  Sender: BRECKENRIDGE
  Company Number: A1-Breckenridge Pharmaceutical, Inc.-2158786

PATIENT

DRUGS (10)
  1. DULOXETINE [Suspect]
     Active Substance: DULOXETINE
  2. CLOZAPINE [Suspect]
     Active Substance: CLOZAPINE
  3. CLONAZEPAM [Concomitant]
     Active Substance: CLONAZEPAM
  4. FLUTICASONE [Concomitant]
     Active Substance: FLUTICASONE
  5. SCOPOLAMINE HYDROBROMIDE [Concomitant]
     Active Substance: SCOPOLAMINE HYDROBROMIDE
  6. SITAGLIPTIN [Concomitant]
     Active Substance: SITAGLIPTIN
  7. METFORMIN [Concomitant]
     Active Substance: METFORMIN HYDROCHLORIDE
  8. LANSOPRAZOLE [Concomitant]
     Active Substance: LANSOPRAZOLE
  9. ATORVASTATIN CALCIUM [Concomitant]
     Active Substance: ATORVASTATIN CALCIUM
  10. ARIPIPRAZOLE [Suspect]
     Active Substance: ARIPIPRAZOLE

REACTIONS (4)
  - Death [Fatal]
  - Leukocytosis [Recovering/Resolving]
  - Lower respiratory tract infection [Recovering/Resolving]
  - Neutrophilia [Recovering/Resolving]
